FAERS Safety Report 10099938 (Version 1)
Quarter: 2014Q2

REPORT INFORMATION
  Report Type: Spontaneous
  Country: US (occurrence: US)
  Receive Date: 20140423
  Receipt Date: 20140423
  Transmission Date: 20141212
  Serious: No
  Sender: FDA-Public Use
  Company Number: US-PFIZER INC-2014110058

PATIENT
  Age: 60 Year
  Sex: Female
  Weight: 63.95 kg

DRUGS (1)
  1. BOSULIF [Suspect]
     Indication: CHRONIC MYELOID LEUKAEMIA
     Dosage: 500 MG, DAILY
     Dates: start: 20140402

REACTIONS (2)
  - Diarrhoea [Recovered/Resolved]
  - Rash [Unknown]
